FAERS Safety Report 6676465-1 (Version None)
Quarter: 2010Q2

REPORT INFORMATION
  Report Type: 
  Country: None (occurrence: None)
  Receive Date: 20100408
  Receipt Date: 20100402
  Transmission Date: 20101027
  Serious: Yes (Death)
  Sender: FDA-Public Use
  Company Number: 2010US001123

PATIENT
  Age: 68 Year
  Sex: Male
  Weight: 120 kg

DRUGS (5)
  1. PROGRAF [Suspect]
     Indication: RENAL TRANSPLANT
     Dosage: 2 MG, BID, ORAL
     Route: 048
     Dates: start: 20030116, end: 20091123
  2. CELLCEPT [Concomitant]
  3. HUMALOG [Concomitant]
  4. LANTUS [Concomitant]
  5. COUMADIN [Concomitant]

REACTIONS (1)
  - CARDIAC FAILURE [None]
